FAERS Safety Report 9232801 (Version 1)
Quarter: 2013Q1

REPORT INFORMATION
  Report Type: Spontaneous
  Country: US (occurrence: None)
  Receive Date: 20121031
  Receipt Date: 20121031
  Transmission Date: 20140127
  Serious: No
  Sender: FDA-Public Use
  Company Number: PHEH2012US014795

PATIENT
  Age: 48 Year
  Sex: Female
  Weight: 77.1 kg

DRUGS (11)
  1. GILENYA [Suspect]
     Route: 048
  2. PANTOPRAZOLE (PANTOPRAZOLE) TABLET, 40MG [Concomitant]
  3. OXYBUTYNIN (OXYBUTYNIN) EXTENDED RELEASE TABLET, 15MG [Concomitant]
  4. GABAPENTIN (GABAPENTIN) TABLET, 800MG [Concomitant]
  5. BACLOFEN (BACLOFEN) TABLET, 20MG [Concomitant]
  6. NITROFURANTOIN (NITROFURANTOIN) CAPSULE, 100MG [Concomitant]
  7. BUPROPION (BUPROPION) TABLET, 150MG [Concomitant]
  8. EVENING PRIMROSE OIL (GAMOLENIC ACID) CAPSULE [Concomitant]
  9. FISH OIL (FISH OIL) CAPSULE [Concomitant]
  10. VITAMIN B12 (CYANOCOBALAMIN) TABLET, 1000 UNK [Concomitant]
  11. METHYLIN (METHYLPHENIDATE HYDROCHLORIDE) CHEWABLE TABLET, 2.5MG [Concomitant]

REACTIONS (3)
  - Eye irritation [None]
  - Hypoaesthesia [None]
  - Asthenia [None]
